FAERS Safety Report 5094761-9 (Version None)
Quarter: 2006Q3

REPORT INFORMATION
  Report Type: 
  Country: None (occurrence: None)
  Receive Date: 20060731
  Receipt Date: 20060420
  Transmission Date: 20061208
  Serious: No
  Sender: FDA-Public Use
  Company Number: 2006PV012359

PATIENT
  Age: 51 Year
  Sex: Male
  Weight: 204.1187 kg

DRUGS (6)
  1. BYETTA [Suspect]
     Indication: DIABETES MELLITUS NON-INSULIN-DEPENDENT
     Dosage: 10 MCG; BID; SC
     Route: 058
     Dates: start: 20051201, end: 20060403
  2. HUMULIN [Concomitant]
  3. NEURONTIN [Concomitant]
  4. COZAAR [Concomitant]
  5. LOPRESSOR [Concomitant]
  6. CYCLOSPORINE [Concomitant]

REACTIONS (1)
  - EOSINOPHILIC CYSTITIS [None]
